FAERS Safety Report 23461278 (Version 1)
Quarter: 2024Q1

REPORT INFORMATION
  Report Type: Spontaneous
  Country: NL (occurrence: NL)
  Receive Date: 20240131
  Receipt Date: 20240131
  Transmission Date: 20240410
  Serious: Yes (Death, Hospitalization)
  Sender: FDA-Public Use
  Company Number: NL-TEVA-VS-3150453

PATIENT
  Age: 53 Year
  Sex: Female

DRUGS (1)
  1. METHOTREXATE [Suspect]
     Active Substance: METHOTREXATE
     Indication: Psoriasis
     Route: 065

REACTIONS (6)
  - Epidermal necrosis [Fatal]
  - Acute kidney injury [Unknown]
  - Pancytopenia [Unknown]
  - Hepatic failure [Unknown]
  - Leukopenia [Unknown]
  - Toxic shock syndrome [Fatal]
